FAERS Safety Report 4876014-4 (Version None)
Quarter: 2006Q1

REPORT INFORMATION
  Report Type: 
  Country: None (occurrence: None)
  Receive Date: 20060109
  Receipt Date: 20060104
  Transmission Date: 20060701
  Serious: Yes (Death, Hospitalization)
  Sender: FDA-Public Use
  Company Number: NL-SANOFI-SYNTHELABO-F01200600016

PATIENT
  Sex: Female

DRUGS (3)
  1. OXALIPLATIN [Suspect]
     Indication: COLORECTAL CANCER
     Route: 041
     Dates: start: 20051208, end: 20051208
  2. CAPECITABINE [Suspect]
     Dosage: DAYS 1-14 (1250 MG/M2 AFTER CYCLE 6)
     Route: 048
     Dates: start: 20051208, end: 20051208
  3. BEVACIZUMAB [Suspect]
     Route: 041
     Dates: start: 20051208, end: 20051208

REACTIONS (8)
  - ASPIRATION [None]
  - ASTHENIA [None]
  - DEATH [None]
  - DIARRHOEA [None]
  - DYSPNOEA [None]
  - GASTROINTESTINAL TOXICITY [None]
  - OESOPHAGITIS [None]
  - PULMONARY EMBOLISM [None]
